FAERS Safety Report 4292514-2 (Version None)
Quarter: 2004Q1

REPORT INFORMATION
  Report Type: 
  Country: None (occurrence: None)
  Receive Date: 20040126
  Receipt Date: 20030910
  Transmission Date: 20041129
  Serious: No
  Sender: FDA-Public Use
  Company Number: USA030946895

PATIENT
  Age: 73 Year
  Sex: Female
  Weight: 64 kg

DRUGS (34)
  1. FORTEO [Suspect]
     Indication: OSTEOPOROSIS
     Dates: start: 20030401
  2. PROZAC [Concomitant]
  3. DARVOCET-N 100 [Concomitant]
  4. SYNTHROID [Concomitant]
  5. KLONOPIN [Concomitant]
  6. MULTIVITAMIN [Concomitant]
  7. PREDNISONE [Concomitant]
  8. VICODIN [Concomitant]
  9. LASIX [Concomitant]
  10. XANAX [Concomitant]
  11. LORAZEPAM [Concomitant]
  12. FLEXERIL [Concomitant]
  13. CALAN [Concomitant]
  14. NEURONTIN [Concomitant]
  15. DURAGESIC [Concomitant]
  16. CALCIUM [Concomitant]
  17. MULTI-VITAMIN [Concomitant]
  18. VITAMIN C [Concomitant]
  19. VITAMIN E [Concomitant]
  20. VITAMIN B-12 [Concomitant]
  21. VITAMIN A [Concomitant]
  22. PREVACID [Concomitant]
  23. PREMARIN [Concomitant]
  24. FOLIC ACID [Concomitant]
  25. POTASSIUM CHLORIDE [Concomitant]
  26. DIAMOX [Concomitant]
  27. SPIRONOLACTONE [Concomitant]
  28. MODURETIC 5-50 [Concomitant]
  29. ZARAROXOLYN (METOLAZONE) [Concomitant]
  30. PENERGAN (PROMETHAZINE HYDROCHLORIDE) [Concomitant]
  31. PERIACTIN [Concomitant]
  32. LOMOTIL [Concomitant]
  33. VITAMIN D [Concomitant]
  34. MAGNESIUM [Concomitant]

REACTIONS (4)
  - FLUID RETENTION [None]
  - OEDEMA [None]
  - SWELLING [None]
  - WEIGHT INCREASED [None]
